FAERS Safety Report 6112563-9 (Version None)
Quarter: 2009Q1

REPORT INFORMATION
  Report Type: 
  Country: None (occurrence: None)
  Receive Date: 20090310
  Receipt Date: 20090223
  Transmission Date: 20090719
  Serious: Yes (Other)
  Sender: FDA-Public Use
  Company Number: 2009S1003031

PATIENT
  Age: 50 Year
  Sex: Male
  Weight: 89 kg

DRUGS (14)
  1. VENLAFAXINE HCL [Suspect]
     Indication: DEPRESSION
     Dosage: 225 MG; ORAL
     Route: 048
     Dates: start: 20080222
  2. ASPIRIN [Concomitant]
  3. ATORVASTATIN [Concomitant]
  4. BEZALIP [Concomitant]
  5. BISOPROLOL [Concomitant]
  6. CARBAMAZEPINE [Concomitant]
  7. ACETAMINOPHEN W/ CODEINE [Concomitant]
  8. DIAZEPAM [Concomitant]
  9. DIPYRIDAMOLE [Concomitant]
  10. ISOSORBIDE MONONITRATE [Concomitant]
  11. NOVOLOG [Concomitant]
  12. OMEPRAZOLE [Concomitant]
  13. PERINDOPRIL ERBUMINE [Concomitant]
  14. QUETIAPINE FUMARATE [Concomitant]

REACTIONS (1)
  - HYPERTRIGLYCERIDAEMIA [None]
